FAERS Safety Report 17594645 (Version 5)
Quarter: 2020Q2

REPORT INFORMATION
  Report Type: Spontaneous
  Country: US (occurrence: US)
  Receive Date: 20200327
  Receipt Date: 20200527
  Transmission Date: 20200713
  Serious: No
  Sender: FDA-Public Use
  Company Number: US-009507513-2003USA009591

PATIENT
  Age: 37 Year
  Sex: Female

DRUGS (2)
  1. GANIRELIX ACETATE INJECTION [Suspect]
     Active Substance: GANIRELIX ACETATE
     Indication: GENERAL SYMPTOM
     Dosage: STRENGTH: 250 MCG/.5 ML/ 250 MICROGRAM DAILY
     Route: 058
     Dates: start: 20200318
  2. GANIRELIX ACETATE INJECTION [Suspect]
     Active Substance: GANIRELIX ACETATE
     Indication: PRODUCT USED FOR UNKNOWN INDICATION
     Dosage: 250 MICROGRAM, DAILY; STRENGTH 250 MICROGRAM (MCG)/.5 (NO UNITS REPORTED)
     Route: 058
     Dates: start: 20200318

REACTIONS (5)
  - Product dose omission [Unknown]
  - Product storage error [Unknown]
  - No adverse event [Unknown]
  - Device connection issue [Unknown]
  - Liquid product physical issue [Unknown]

NARRATIVE: CASE EVENT DATE: 2020
